FAERS Safety Report 6839215-1 (Version None)
Quarter: 2010Q3

REPORT INFORMATION
  Report Type: 
  Country: None (occurrence: None)
  Receive Date: 20100708
  Receipt Date: 20100624
  Transmission Date: 20110219
  Serious: Yes (Hospitalization, Other)
  Sender: FDA-Public Use
  Company Number: 20100287

PATIENT
  Age: 52 Year
  Sex: Male

DRUGS (4)
  1. VENOFER [Suspect]
     Indication: ANAEMIA
     Dosage: 300 MG INTRAVENOUS
     Route: 042
     Dates: start: 20100528, end: 20100528
  2. METFORMIN HCL [Concomitant]
  3. ASPIRIN [Concomitant]
  4. PANTOPRAZOLE [Concomitant]

REACTIONS (3)
  - DECREASED APPETITE [None]
  - HYPOPHAGIA [None]
  - PANCREATITIS [None]
